FAERS Safety Report 11966482 (Version 2)
Quarter: 2016Q1

REPORT INFORMATION
  Report Type: Report from Study
  Country: BR (occurrence: BR)
  Receive Date: 20160127
  Receipt Date: 20160316
  Transmission Date: 20160526
  Serious: Yes (Other)
  Sender: FDA-Public Use
  Company Number: BR-BAYER-2016-012751

PATIENT
  Age: 78 Year
  Sex: Female

DRUGS (2)
  1. UREA. [Concomitant]
     Active Substance: UREA
  2. NEXAVAR [Suspect]
     Active Substance: SORAFENIB
     Indication: HEPATIC CANCER
     Dosage: 400 MG, BID
     Route: 048
     Dates: start: 20151217, end: 201602

REACTIONS (5)
  - Hyperkeratosis [None]
  - Gait disturbance [None]
  - Erythema [None]
  - Purulent discharge [None]
  - Pain [None]

NARRATIVE: CASE EVENT DATE: 201601
